FAERS Safety Report 9790179 (Version 1)
Quarter: 2013Q4

REPORT INFORMATION
  Report Type: Spontaneous
  Country: DK (occurrence: FR)
  Receive Date: 20131231
  Receipt Date: 20131231
  Transmission Date: 20140711
  Serious: Yes (Hospitalization)
  Sender: FDA-Public Use
  Company Number: FR-FRI-1000052452

PATIENT
  Age: 83 Year
  Sex: Male

DRUGS (7)
  1. ESCITALOPRAM [Suspect]
     Dosage: 5 MG
     Route: 048
  2. XARELTO [Interacting]
     Dosage: 15 MG
     Route: 048
     Dates: end: 20131115
  3. KARDEGIC [Interacting]
     Dosage: 75 MG
     Route: 048
     Dates: end: 20131115
  4. INEXIUM [Concomitant]
  5. MONOTILDIEM [Concomitant]
  6. SIMVASTATINE [Concomitant]
  7. TEMESTA [Concomitant]

REACTIONS (3)
  - Haematoma [Recovered/Resolved]
  - Traumatic haematoma [Recovered/Resolved]
  - Drug interaction [Recovered/Resolved]
